FAERS Safety Report 12465499 (Version 1)
Quarter: 2016Q2

REPORT INFORMATION
  Report Type: Report from Study
  Country: US (occurrence: US)
  Receive Date: 20160614
  Receipt Date: 20160614
  Transmission Date: 20160815
  Serious: Yes (Other)
  Sender: FDA-Public Use
  Company Number: US-MDT-ADR-2016-01084

PATIENT
  Age: 34 Year
  Sex: Female

DRUGS (16)
  1. BUPIVACAINE. [Suspect]
     Active Substance: BUPIVACAINE
     Dosage: 14.985 MG/DAY
     Route: 037
  2. COMPOUNDED BACLOFEN [Suspect]
     Active Substance: BACLOFEN
     Dosage: 99.90 MCG/DAY
     Route: 037
  3. CLONIDINE. [Suspect]
     Active Substance: CLONIDINE
     Dosage: 239.77 MCG/DAY
     Route: 037
  4. CLONIDINE. [Suspect]
     Active Substance: CLONIDINE
     Dosage: 299.71 MCG/DAY
     Route: 037
  5. DILAUDID [Suspect]
     Active Substance: HYDROMORPHONE HYDROCHLORIDE
     Dosage: 1.5984 MG/DAY
     Route: 037
  6. DILAUDID [Suspect]
     Active Substance: HYDROMORPHONE HYDROCHLORIDE
     Dosage: 0.2498 MG/DAY
     Route: 037
  7. COMPOUNDED BACLOFEN [Suspect]
     Active Substance: BACLOFEN
     Dosage: 9.37 MCG/DAY
     Route: 037
  8. COMPOUNDED BACLOFEN [Suspect]
     Active Substance: BACLOFEN
     Dosage: 59.94 MCG/DAY
     Route: 037
  9. COMPOUNDED BACLOFEN [Suspect]
     Active Substance: BACLOFEN
     Dosage: 7.49 MCG/DAY
     Route: 037
     Dates: start: 20160426
  10. DILAUDID [Suspect]
     Active Substance: HYDROMORPHONE HYDROCHLORIDE
     Dosage: 1.9980 MG/DAY
     Route: 037
  11. CLONIDINE. [Suspect]
     Active Substance: CLONIDINE
     Dosage: 37.46 MCG/DAY
     Route: 037
  12. BUPIVACAINE. [Suspect]
     Active Substance: BUPIVACAINE
     Dosage: 1.873 MG/DAY
     Route: 037
  13. BUPIVACAINE. [Suspect]
     Active Substance: BUPIVACAINE
     Dosage: 11.988 MG/DAY
     Route: 037
  14. BUPIVACAINE. [Suspect]
     Active Substance: BUPIVACAINE
     Dosage: 1.499 MG/DAY
     Route: 037
     Dates: start: 20160426
  15. DILAUDID [Suspect]
     Active Substance: HYDROMORPHONE HYDROCHLORIDE
     Dosage: 0.1998 MG/DAY
     Route: 037
     Dates: start: 20160426
  16. CLONIDINE. [Suspect]
     Active Substance: CLONIDINE
     Dosage: 29.97 MCG/DAY
     Route: 037
     Dates: start: 20160426

REACTIONS (4)
  - Drug withdrawal syndrome [Recovered/Resolved]
  - Nausea [Recovered/Resolved]
  - Adverse drug reaction [Recovered/Resolved]
  - Fatigue [Recovered/Resolved]

NARRATIVE: CASE EVENT DATE: 20141216
